FAERS Safety Report 18864631 (Version 1)
Quarter: 2021Q1

REPORT INFORMATION
  Report Type: Spontaneous
  Country: US (occurrence: US)
  Receive Date: 20210209
  Receipt Date: 20210209
  Transmission Date: 20210420
  Serious: Yes (Hospitalization)
  Sender: FDA-Public Use
  Company Number: US-SCIEGEN-2021SCISPO00070

PATIENT
  Age: 77 Year
  Sex: Female
  Weight: 190 kg

DRUGS (3)
  1. ATENOLOL. [Concomitant]
     Active Substance: ATENOLOL
     Indication: HYPERTENSION
     Route: 065
  2. HYDROCHLOROTHIAZIDE CAPSULES USP, 12.5 MG [Suspect]
     Active Substance: HYDROCHLOROTHIAZIDE
     Indication: FLUID RETENTION
     Route: 048
     Dates: end: 20210111
  3. LOSARTAN POTASSIUM. [Concomitant]
     Active Substance: LOSARTAN POTASSIUM
     Indication: HYPERTENSION
     Route: 065

REACTIONS (7)
  - Gait inability [Recovered/Resolved]
  - Peripheral swelling [Recovered/Resolved]
  - Diarrhoea [Recovered/Resolved]
  - Vomiting [Recovered/Resolved]
  - Blood potassium decreased [Recovered/Resolved]
  - Blood magnesium decreased [Recovered/Resolved]
  - Blood sodium decreased [Recovered/Resolved]

NARRATIVE: CASE EVENT DATE: 202012
